FAERS Safety Report 7245012-8 (Version None)
Quarter: 2011Q1

REPORT INFORMATION
  Report Type: 
  Country: None (occurrence: None)
  Receive Date: 20110126
  Receipt Date: 20110118
  Transmission Date: 20110831
  Serious: Yes (Death, Hospitalization, Other)
  Sender: FDA-Public Use
  Company Number: NL-PFIZER INC-2010166577

PATIENT
  Age: 69 Year
  Sex: Male
  Weight: 73 kg

DRUGS (10)
  1. LYRICA [Suspect]
     Indication: PAIN IN EXTREMITY
     Dosage: 300 MG, 1X/DAY
     Dates: start: 20080101
  2. TRAMADOL [Concomitant]
  3. OXYCONTIN [Concomitant]
  4. PLAVIX [Concomitant]
     Dosage: 1 UNK, 1X/DAY
  5. DILTIAZEM HCL [Concomitant]
     Dosage: 60 UNK, 3X/DAY
  6. PANTOZOL [Concomitant]
     Dosage: 40 MG, UNK
  7. METFORMIN HCL [Suspect]
     Dosage: 1 UNK, 2X/DAY
     Dates: start: 20081001
  8. MOVICOLON [Concomitant]
     Dosage: UNK
  9. ACENOCOUMAROL [Concomitant]
  10. ASCAL [Concomitant]
     Dosage: 1 UNK, 1X/DAY

REACTIONS (3)
  - PULMONARY FIBROSIS [None]
  - INFLUENZA VIRUS TEST POSITIVE [None]
  - ALVEOLITIS [None]
